FAERS Safety Report 24665976 (Version 1)
Quarter: 2024Q4

REPORT INFORMATION
  Report Type: Report from Study
  Country: AU (occurrence: AU)
  Receive Date: 20241126
  Receipt Date: 20241126
  Transmission Date: 20250115
  Serious: Yes (Other)
  Sender: ABBVIE
  Company Number: AU-ABBVIE-6011473

PATIENT
  Age: 64 Year

DRUGS (1)
  1. HUMIRA [Suspect]
     Active Substance: ADALIMUMAB
     Indication: Ankylosing spondylitis
     Route: 058
     Dates: end: 20241018

REACTIONS (10)
  - Intra-abdominal fluid collection [Unknown]
  - Headache [Unknown]
  - Bone pain [Unknown]
  - Psoriasis [Unknown]
  - Dyspepsia [Unknown]
  - Rash [Unknown]
  - Uveitis [Unknown]
  - Blood disorder [Unknown]
  - Ankylosing spondylitis [Unknown]
  - Blood disorder [Unknown]

NARRATIVE: CASE EVENT DATE: 20241020
